FAERS Safety Report 23084343 (Version 3)
Quarter: 2025Q4

REPORT INFORMATION
  Report Type: Spontaneous
  Country: US (occurrence: None)
  Receive Date: 20231019
  Receipt Date: 20251107
  Transmission Date: 20260118
  Serious: No
  Sender: INCYTE
  Company Number: US-INCYTE CORPORATION-2023IN010653

PATIENT

DRUGS (3)
  1. JAKAFI [Suspect]
     Active Substance: RUXOLITINIB
     Indication: Myelofibrosis
     Dosage: 20 MILLIGRAM, QD
  2. JAKAFI [Suspect]
     Active Substance: RUXOLITINIB
     Indication: Myalgia
  3. VOQUEZNA [Suspect]
     Active Substance: VONOPRAZAN FUMARATE
     Indication: Product used for unknown indication
     Dosage: UNK
     Route: 065

REACTIONS (6)
  - Dyspepsia [Unknown]
  - Dizziness [Unknown]
  - Off label use [Unknown]
  - Drug hypersensitivity [Unknown]
  - Headache [Unknown]
  - Nausea [Unknown]
